FAERS Safety Report 25074300 (Version 1)
Quarter: 2025Q1

REPORT INFORMATION
  Report Type: Spontaneous
  Country: CN (occurrence: CN)
  Receive Date: 20250313
  Receipt Date: 20250313
  Transmission Date: 20250409
  Serious: Yes (Death, Life-Threatening, Hospitalization, Disabling, Other)
  Sender: BEIGENE
  Company Number: CN-BEIGENE-BGN-2025-004042

PATIENT
  Age: 69 Year
  Weight: 55 kg

DRUGS (16)
  1. TISLELIZUMAB [Suspect]
     Active Substance: TISLELIZUMAB
     Indication: Diffuse large B-cell lymphoma
  2. TISLELIZUMAB [Suspect]
     Active Substance: TISLELIZUMAB
     Indication: Chronic lymphocytic leukaemia
     Route: 041
  3. TISLELIZUMAB [Suspect]
     Active Substance: TISLELIZUMAB
     Indication: Richter^s syndrome
     Route: 041
  4. TISLELIZUMAB [Suspect]
     Active Substance: TISLELIZUMAB
  5. XPOVIO [Suspect]
     Active Substance: SELINEXOR
     Indication: Diffuse large B-cell lymphoma
     Dosage: 40 MILLIGRAM, QWK, STARTING FROM D1 UNTIL D18
     Route: 048
  6. XPOVIO [Suspect]
     Active Substance: SELINEXOR
     Indication: Chronic lymphocytic leukaemia
     Dosage: 40 MILLIGRAM, QWK, STARTING FROM D1 UNTIL D18
  7. XPOVIO [Suspect]
     Active Substance: SELINEXOR
     Indication: Richter^s syndrome
  8. ORELABRUTINIB [Suspect]
     Active Substance: ORELABRUTINIB
     Indication: Diffuse large B-cell lymphoma
     Route: 048
  9. ORELABRUTINIB [Suspect]
     Active Substance: ORELABRUTINIB
     Indication: Chronic lymphocytic leukaemia
  10. ORELABRUTINIB [Suspect]
     Active Substance: ORELABRUTINIB
     Indication: Richter^s syndrome
  11. LENALIDOMIDE [Suspect]
     Active Substance: LENALIDOMIDE
     Indication: Diffuse large B-cell lymphoma
     Route: 048
  12. LENALIDOMIDE [Suspect]
     Active Substance: LENALIDOMIDE
     Indication: Chronic lymphocytic leukaemia
  13. LENALIDOMIDE [Suspect]
     Active Substance: LENALIDOMIDE
     Indication: Richter^s syndrome
  14. ADCETRIS [Suspect]
     Active Substance: BRENTUXIMAB VEDOTIN
     Indication: Diffuse large B-cell lymphoma
     Route: 042
  15. ADCETRIS [Suspect]
     Active Substance: BRENTUXIMAB VEDOTIN
     Indication: Chronic lymphocytic leukaemia
  16. ADCETRIS [Suspect]
     Active Substance: BRENTUXIMAB VEDOTIN
     Indication: Richter^s syndrome

REACTIONS (8)
  - Neutropenic sepsis [Fatal]
  - Platelet count decreased [Fatal]
  - Anaemia [Fatal]
  - Pneumonia [Fatal]
  - Respiratory failure [Fatal]
  - Cardiac failure acute [Unknown]
  - Off label use [Unknown]
  - Prescribed underdose [Unknown]
